FAERS Safety Report 20780166 (Version 3)
Quarter: 2022Q3

REPORT INFORMATION
  Report Type: Spontaneous
  Country: US (occurrence: US)
  Receive Date: 20220503
  Receipt Date: 20220705
  Transmission Date: 20221027
  Serious: No
  Sender: FDA-Public Use
  Company Number: US-JNJFOC-20220449665

PATIENT
  Age: 89 Year
  Sex: Male

DRUGS (5)
  1. ERLEADA [Suspect]
     Active Substance: APALUTAMIDE
     Indication: Product used for unknown indication
     Route: 048
  2. ORGOVYX [Suspect]
     Active Substance: RELUGOLIX
     Indication: Prostate cancer
     Dosage: ONE TIME DOSE
     Route: 048
     Dates: start: 20210630
  3. ORGOVYX [Suspect]
     Active Substance: RELUGOLIX
     Dosage: APPROXIMATELY FROM 01-JUL-2021 WITH PRE BIOLOGICS
     Route: 048
     Dates: start: 20210701
  4. ORGOVYX [Suspect]
     Active Substance: RELUGOLIX
     Dosage: ON 30-AUG-2021 WITH BIOLOGICS
     Route: 048
     Dates: start: 20210830
  5. ORGOVYX [Suspect]
     Active Substance: RELUGOLIX
     Route: 048

REACTIONS (3)
  - Hypoacusis [Unknown]
  - Urinary tract infection [Not Recovered/Not Resolved]
  - Product dose omission issue [Unknown]

NARRATIVE: CASE EVENT DATE: 20220401
